FAERS Safety Report 13224591 (Version 4)
Quarter: 2018Q1

REPORT INFORMATION
  Report Type: Report from Study
  Country: None (occurrence: CA)
  Receive Date: 20170213
  Receipt Date: 20180206
  Transmission Date: 20180508
  Serious: Yes (Other)
  Sender: FDA-Public Use
  Company Number: CA-ABBVIE-17K-028-1867902-00

PATIENT
  Sex: Female
  Weight: 25.8 kg

DRUGS (3)
  1. HUMIRA [Suspect]
     Active Substance: ADALIMUMAB
     Indication: UVEITIS
     Dosage: VIAL
     Route: 058
     Dates: start: 20160324, end: 201604
  2. HUMIRA [Suspect]
     Active Substance: ADALIMUMAB
     Route: 058
     Dates: start: 201609
  3. PREDNISONE. [Concomitant]
     Active Substance: PREDNISONE
     Indication: UVEITIS
     Dates: start: 20151222

REACTIONS (7)
  - Eye inflammation [Not Recovered/Not Resolved]
  - Neutropenia [Unknown]
  - Epistaxis [Not Recovered/Not Resolved]
  - Cataract [Not Recovered/Not Resolved]
  - Drug ineffective [Unknown]
  - Intraocular pressure fluctuation [Not Recovered/Not Resolved]
  - Cataract [Not Recovered/Not Resolved]

NARRATIVE: CASE EVENT DATE: 2016
